FAERS Safety Report 16482337 (Version 1)
Quarter: 2019Q2

REPORT INFORMATION
  Report Type: Spontaneous
  Country: US (occurrence: US)
  Receive Date: 20190627
  Receipt Date: 20190627
  Transmission Date: 20190711
  Serious: No
  Sender: FDA-Public Use
  Company Number: US-ELI_LILLY_AND_COMPANY-US201906009005

PATIENT
  Sex: Female

DRUGS (1)
  1. HUMALOG [Suspect]
     Active Substance: INSULIN LISPRO
     Indication: PRODUCT USED FOR UNKNOWN INDICATION
     Dosage: UNK UNK, UNKNOWN
     Route: 065

REACTIONS (7)
  - Fall [Unknown]
  - Vomiting [Unknown]
  - Blood glucose increased [Unknown]
  - Malaise [Unknown]
  - Product dose omission [Unknown]
  - Ankle fracture [Unknown]
  - Headache [Unknown]

NARRATIVE: CASE EVENT DATE: 20190614
